FAERS Safety Report 6416816-6 (Version None)
Quarter: 2009Q4

REPORT INFORMATION
  Report Type: 
  Country: None (occurrence: None)
  Receive Date: 20091022
  Receipt Date: 20091012
  Transmission Date: 20100525
  Serious: Yes (Death, Hospitalization)
  Sender: FDA-Public Use
  Company Number: 2009AC000212

PATIENT
  Age: 72 Year
  Sex: Male

DRUGS (14)
  1. DIGOXIN [Suspect]
     Dosage: PO
     Route: 048
  2. ENALAPRIL MALEATE [Concomitant]
  3. ATENOLOL [Concomitant]
  4. AMARYL [Concomitant]
  5. ISOSORBIDE [Concomitant]
  6. HUMULIN R [Concomitant]
  7. LOVENOX [Concomitant]
  8. ASPIRIN [Concomitant]
  9. VASOTEC [Concomitant]
  10. LIPITOR [Concomitant]
  11. COUMADIN [Concomitant]
  12. PLAVIX [Concomitant]
  13. COREG [Concomitant]
  14. INSULIN [Concomitant]

REACTIONS (7)
  - ANXIETY [None]
  - DEFORMITY [None]
  - ECONOMIC PROBLEM [None]
  - HYPERTENSION [None]
  - MYOCARDIAL ISCHAEMIA [None]
  - PAIN [None]
  - PAIN IN EXTREMITY [None]
